FAERS Safety Report 5304258-6 (Version None)
Quarter: 2007Q2

REPORT INFORMATION
  Report Type: 
  Country: None (occurrence: None)
  Receive Date: 20070423
  Receipt Date: 20070412
  Transmission Date: 20071010
  Serious: Yes (Hospitalization, Other)
  Sender: FDA-Public Use
  Company Number: PHEH2007US05298

PATIENT
  Age: 59 Year
  Sex: Female

DRUGS (2)
  1. ZELNORM [Suspect]
     Indication: IRRITABLE BOWEL SYNDROME
     Dosage: 6 MG, BID
     Dates: start: 20040101, end: 20070408
  2. LYRICA [Concomitant]
     Dosage: UNK, UNK
     Dates: start: 20060901, end: 20070401

REACTIONS (7)
  - CONDITION AGGRAVATED [None]
  - DECREASED APPETITE [None]
  - DEHYDRATION [None]
  - DISTURBANCE IN ATTENTION [None]
  - HEART RATE INCREASED [None]
  - NAUSEA [None]
  - SYNCOPE [None]
